FAERS Safety Report 17038696 (Version 2)
Quarter: 2019Q4

REPORT INFORMATION
  Report Type: Spontaneous
  Country: DE (occurrence: DE)
  Receive Date: 20191115
  Receipt Date: 20191209
  Transmission Date: 20200122
  Serious: Yes (Other)
  Sender: FDA-Public Use
  Company Number: DE-ELI_LILLY_AND_COMPANY-DE201909009774

PATIENT
  Sex: Female

DRUGS (2)
  1. OLUMIANT [Suspect]
     Active Substance: BARICITINIB
     Indication: RHEUMATOID ARTHRITIS
     Dosage: 4 MG, UNKNOWN
     Route: 065
     Dates: start: 2018
  2. CELECOXIB. [Concomitant]
     Active Substance: CELECOXIB
     Dosage: 400 MG, UNKNOWN
     Route: 065

REACTIONS (3)
  - Foot fracture [Unknown]
  - Osteopenia [Unknown]
  - Bone marrow oedema [Unknown]
